FAERS Safety Report 23334223 (Version 1)
Quarter: 2023Q4

REPORT INFORMATION
  Report Type: Report from Study
  Country: CA (occurrence: CA)
  Receive Date: 20231223
  Receipt Date: 20231223
  Transmission Date: 20240109
  Serious: Yes (Hospitalization)
  Sender: FDA-Public Use
  Company Number: CA-HORIZON THERAPEUTICS-HZN-2023-011018

PATIENT

DRUGS (7)
  1. RAVICTI [Suspect]
     Active Substance: GLYCEROL PHENYLBUTYRATE
     Indication: Hyperammonaemia
     Dosage: 0.7 MG, 3 DAILY
     Route: 065
     Dates: start: 20230924
  2. RAVICTI [Suspect]
     Active Substance: GLYCEROL PHENYLBUTYRATE
     Dosage: 1 ML, TID
     Dates: start: 20231125
  3. DUOCAL [Concomitant]
     Dosage: UNK
     Dates: start: 202309, end: 2023
  4. CITRULLINE [Concomitant]
     Active Substance: CITRULLINE
  5. IRON [Concomitant]
     Active Substance: IRON
  6. VITAMIN D [Concomitant]
     Active Substance: VITAMIN D NOS
  7. SODIUM BENZOATE [Concomitant]
     Active Substance: SODIUM BENZOATE

REACTIONS (2)
  - Ammonia increased [Unknown]
  - Vomiting [Not Recovered/Not Resolved]

NARRATIVE: CASE EVENT DATE: 20231101
